FAERS Safety Report 6469587-1 (Version None)
Quarter: 2009Q4

REPORT INFORMATION
  Report Type: 
  Country: None (occurrence: None)
  Receive Date: 20091202
  Receipt Date: 20091202
  Transmission Date: 20100525
  Serious: Yes (Other)
  Sender: FDA-Public Use
  Company Number: None

PATIENT
  Age: 66 Year
  Sex: Male
  Weight: 120.2032 kg

DRUGS (1)
  1. CLONIDINE [Suspect]
     Indication: HYPERTENSION
     Dosage: 0.3 MG DAY TRANSDERMAL
     Route: 062
     Dates: start: 20091023, end: 20091129

REACTIONS (2)
  - INCORRECT DOSE ADMINISTERED [None]
  - PRODUCT ADHESION ISSUE [None]
